FAERS Safety Report 23071697 (Version 1)
Quarter: 2023Q4

REPORT INFORMATION
  Report Type: Report from Study
  Country: IE (occurrence: IE)
  Receive Date: 20231017
  Receipt Date: 20231017
  Transmission Date: 20240110
  Serious: Yes (Hospitalization, Other)
  Sender: FDA-Public Use
  Company Number: IE-002147023-NVSC2022IE135984

PATIENT
  Age: 34 Year
  Sex: Male

DRUGS (2)
  1. GILENYA [Suspect]
     Active Substance: FINGOLIMOD HYDROCHLORIDE
     Indication: Relapsing-remitting multiple sclerosis
     Dosage: 0.5 MG, QD
     Route: 048
     Dates: start: 20220613
  2. DELTACORTRIL [Concomitant]
     Active Substance: PREDNISOLONE
     Indication: Mental disorder
     Dosage: 5 MG, QD (PATIENT TOOK FOR 3 DAYS)
     Route: 048
     Dates: start: 202209

REACTIONS (8)
  - Facial paralysis [Unknown]
  - Pain in extremity [Unknown]
  - Bradycardia [Recovered/Resolved]
  - Fatigue [Recovering/Resolving]
  - Epistaxis [Recovered/Resolved]
  - SARS-CoV-2 test positive [Not Recovered/Not Resolved]
  - Blood pressure decreased [Unknown]
  - Headache [Not Recovered/Not Resolved]

NARRATIVE: CASE EVENT DATE: 20220616
